FAERS Safety Report 6326778-8 (Version None)
Quarter: 2009Q3

REPORT INFORMATION
  Report Type: 
  Country: None (occurrence: None)
  Receive Date: 20090825
  Receipt Date: 20090815
  Transmission Date: 20100115
  Serious: Yes (Other)
  Sender: FDA-Public Use
  Company Number: DE-PFIZER INC-2009239716

PATIENT
  Age: 84 Year

DRUGS (2)
  1. NORVASC [Suspect]
     Dosage: UNK
     Dates: start: 20070101
  2. ACETYLSALICYLIC ACID [Concomitant]

REACTIONS (2)
  - IRON DEFICIENCY ANAEMIA [None]
  - TEMPORAL ARTERITIS [None]
